APPROVED DRUG PRODUCT: DEXMETHYLPHENIDATE HYDROCHLORIDE
Active Ingredient: DEXMETHYLPHENIDATE HYDROCHLORIDE
Strength: 2.5MG
Dosage Form/Route: TABLET;ORAL
Application: A207901 | Product #001 | TE Code: AB
Applicant: TRIS PHARMA INC
Approved: Aug 26, 2016 | RLD: No | RS: No | Type: RX